FAERS Safety Report 8052902 (Version 2)
Quarter: 2012Q4

REPORT INFORMATION
  Report Type: 
  Country: FR (occurrence: FR)
  Receive Date: 20110725
  Receipt Date: 20121106
  Transmission Date: 20130627
  Serious: Yes (Life-Threatening, Hospitalization)
  Sender: FDA-Public Use
  Company Number: FR-SANOFI-AVENTIS-2011SA045140

PATIENT
  Age: 65 Year
  Sex: Male

DRUGS (6)
  1. KETEK [Suspect]
     Indication: BRONCHITIS
     Route: 048
     Dates: start: 20101003, end: 20101006
  2. PARACETAMOL [Suspect]
     Indication: BRONCHITIS
     Route: 048
     Dates: start: 20101002, end: 20101007
  3. METFORMIN [Suspect]
     Indication: TYPE 2 DIABETES MELLITUS
     Route: 048
     Dates: end: 20101008
  4. LAROXYL [Suspect]
     Indication: POSTOPERATIVE PAIN
     Route: 048
     Dates: end: 20101008
  5. LEVOTHYROX [Concomitant]
     Indication: DRUG USE FOR UNKNOWN INDICATION
     Route: 048
     Dates: end: 20101008
  6. LYRICA [Concomitant]
     Indication: POSTOPERATIVE PAIN
     Route: 048

REACTIONS (2)
  - Hepatitis fulminant [Recovered/Resolved with Sequelae]
  - Asthenia [Recovered/Resolved]
